FAERS Safety Report 5515553-X (Version None)
Quarter: 2007Q4

REPORT INFORMATION
  Report Type: 
  Country: None (occurrence: None)
  Receive Date: 20071113
  Receipt Date: 20070402
  Transmission Date: 20080405
  Serious: No
  Sender: FDA-Public Use
  Company Number: A0645610A

PATIENT
  Age: 79 Year
  Sex: Female

DRUGS (8)
  1. COREG [Suspect]
     Indication: ATRIAL FIBRILLATION
     Dosage: 3.125MG TWICE PER DAY
     Route: 048
     Dates: start: 20070330, end: 20070401
  2. GLUCOPHAGE [Concomitant]
  3. ACTOS [Concomitant]
  4. LESCOL [Concomitant]
  5. LANOXIN [Concomitant]
  6. POTASSIUM CHLORIDE [Concomitant]
  7. UNIVASC [Concomitant]
  8. LASIX [Concomitant]

REACTIONS (4)
  - ERYTHEMA [None]
  - PHARMACEUTICAL PRODUCT COMPLAINT [None]
  - PRURITUS [None]
  - RASH [None]
